FAERS Safety Report 14756038 (Version 2)
Quarter: 2022Q2

REPORT INFORMATION
  Report Type: Spontaneous
  Country: IN (occurrence: IN)
  Receive Date: 20180413
  Receipt Date: 20220411
  Transmission Date: 20220721
  Serious: Yes (Other)
  Sender: FDA-Public Use
  Company Number: None

PATIENT
  Age: 33 Year
  Sex: Male

DRUGS (2)
  1. ZOLPIDEM [Suspect]
     Active Substance: ZOLPIDEM TARTRATE
     Indication: Product used for unknown indication
     Dosage: 300 MG, QD
     Route: 065
  2. QUETIAPINE FUMARATE [Suspect]
     Active Substance: QUETIAPINE FUMARATE
     Indication: Product used for unknown indication
     Dosage: 200 MG, QD (AT NIGHT)
     Route: 065

REACTIONS (11)
  - Dependence [Unknown]
  - Sedation [Unknown]
  - Euphoric mood [Unknown]
  - Food craving [Unknown]
  - Inability to afford medication [Unknown]
  - Headache [Unknown]
  - Loss of control of legs [Unknown]
  - Drug tolerance [Unknown]
  - Weight increased [Unknown]
  - Tremor [Unknown]
  - Conjunctival hyperaemia [Unknown]
